FAERS Safety Report 10902479 (Version 1)
Quarter: 2015Q1

REPORT INFORMATION
  Report Type: Report from Study
  Country: US (occurrence: US)
  Receive Date: 20150310
  Receipt Date: 20150310
  Transmission Date: 20150721
  Serious: Yes (Hospitalization)
  Sender: FDA-Public Use
  Company Number: US-BAYER-2014-183616

PATIENT
  Age: 73 Year
  Sex: Male

DRUGS (14)
  1. LEVOTHYROXINE SODIUM. [Concomitant]
     Active Substance: LEVOTHYROXINE SODIUM
  2. ALBUTEROL SULFATE. [Concomitant]
     Active Substance: ALBUTEROL SULFATE
     Dosage: 2.5 MG/ 3 ML
  3. BACTROBAN [Concomitant]
     Active Substance: MUPIROCIN\MUPIROCIN CALCIUM
  4. HYCODAN [HYDROCODONE BITARTRATE] [Concomitant]
  5. TESSALON [Concomitant]
     Active Substance: BENZONATATE
     Dosage: 100 MG
  6. OMEPRAZOLE. [Concomitant]
     Active Substance: OMEPRAZOLE
  7. ASTELIN [Concomitant]
     Active Substance: AZELASTINE HYDROCHLORIDE
     Dosage: 137 MCG
  8. ONDANSETRON [Concomitant]
     Active Substance: ONDANSETRON
  9. MEGESTROL ACETATE. [Concomitant]
     Active Substance: MEGESTROL ACETATE
     Dosage: 40 MG /ML
  10. LOMOTIL [DIPHENOXYLATE HYDROCHLORIDE] [Concomitant]
  11. ATENOLOL. [Concomitant]
     Active Substance: ATENOLOL
  12. ALLEGRA-D [Concomitant]
     Active Substance: FEXOFENADINE\PSEUDOEPHEDRINE
     Dosage: 180 MG -240 MG
  13. NEXAVAR [Suspect]
     Active Substance: SORAFENIB
     Indication: RENAL CELL CARCINOMA
     Dosage: 200 MG, BID
     Route: 048
     Dates: start: 20140815, end: 201412
  14. NEXAVAR [Suspect]
     Active Substance: SORAFENIB
     Indication: METASTASES TO LUNG
     Dosage: UNK

REACTIONS (10)
  - Toxicity to various agents [None]
  - Anaemia [None]
  - Decreased appetite [None]
  - Bronchitis [None]
  - Constipation [None]
  - Dehydration [None]
  - Fatigue [None]
  - Hypotension [None]
  - Muscular weakness [None]
  - Malaise [None]

NARRATIVE: CASE EVENT DATE: 20141113
